FAERS Safety Report 5005834-0 (Version None)
Quarter: 2006Q2

REPORT INFORMATION
  Report Type: 
  Country: None (occurrence: None)
  Receive Date: 20060517
  Receipt Date: 20060517
  Transmission Date: 20061013
  Serious: Yes (Hospitalization)
  Sender: FDA-Public Use
  Company Number: None

PATIENT
  Age: 22 Year
  Sex: Female

DRUGS (3)
  1. IFOSFAMIDE [Suspect]
     Indication: NEOPLASM MALIGNANT
     Dosage: 3.76GM
  2. VINORELBINE [Suspect]
     Indication: NEOPLASM MALIGNANT
     Dosage: 37MG    ONCE
  3. GEMCITABINE [Suspect]
     Indication: NEOPLASM MALIGNANT
     Dosage: 1500MG  ONCE

REACTIONS (1)
  - PANCYTOPENIA [None]
